FAERS Safety Report 16707146 (Version 2)
Quarter: 2019Q4

REPORT INFORMATION
  Report Type: Not Available
  Country: US (occurrence: US)
  Receive Date: 20190815
  Receipt Date: 20191009
  Transmission Date: 20200122
  Serious: No
  Sender: FDA-Public Use
  Company Number: US-NEUROCRINE BIOSCIENCES INC.-2019NBI02198

PATIENT
  Age: 57 Year
  Sex: Female

DRUGS (10)
  1. COGENTIN [Concomitant]
     Active Substance: BENZTROPINE MESYLATE
  2. FLUOXETINE HCL [Concomitant]
     Active Substance: FLUOXETINE HYDROCHLORIDE
     Dosage: TAKE 1 CAPSULE BY MOUTH EVERY MORNING AND 2 CAPSULES (40MG) AT BEDTIME
     Route: 048
  3. CARBAMAZEPINE. [Concomitant]
     Active Substance: CARBAMAZEPINE
     Dosage: ER 200 MG CPMP 12 HR
     Route: 048
  4. QUETIAPINE FUMARATE. [Concomitant]
     Active Substance: QUETIAPINE FUMARATE
     Dosage: TAKE ONE AND ONE-HALF (450MG) AT BEDTIME
     Route: 048
  5. INGREZZA [Suspect]
     Active Substance: VALBENAZINE
     Indication: TARDIVE DYSKINESIA
     Route: 048
     Dates: start: 20190708, end: 20190715
  6. INGREZZA [Suspect]
     Active Substance: VALBENAZINE
     Route: 048
     Dates: start: 20190716, end: 20190725
  7. LAMOTRIGINE. [Concomitant]
     Active Substance: LAMOTRIGINE
     Dosage: TAKE 1 TABLET BY MOUTH EVERY MORNING AND 2 TABLETS (300MG) AT BEDTIME
     Route: 048
  8. COGENTIN [Concomitant]
     Active Substance: BENZTROPINE MESYLATE
     Dosage: 2 TABLETS 1 TIME A DAY
  9. BUPROPION XL [Concomitant]
     Active Substance: BUPROPION
     Dosage: ER 24 H TAKE THREE TABLETS (450 MG)
     Route: 048
  10. MIRTAZAPINE. [Concomitant]
     Active Substance: MIRTAZAPINE
     Dosage: AT BEDTIME
     Route: 048

REACTIONS (5)
  - Decreased appetite [Recovered/Resolved]
  - Dizziness [Unknown]
  - Dysarthria [Recovered/Resolved]
  - Restlessness [Recovered/Resolved]
  - Balance disorder [Recovered/Resolved]

NARRATIVE: CASE EVENT DATE: 201907
